FAERS Safety Report 8318255 (Version 3)
Quarter: 2013Q4

REPORT INFORMATION
  Report Type: Spontaneous
  Country: US (occurrence: US)
  Receive Date: 20120103
  Receipt Date: 20131230
  Transmission Date: 20140711
  Serious: Yes (Hospitalization, Other)
  Sender: FDA-Public Use
  Company Number: US-BAYER-2011-123707

PATIENT
  Age: 46 Year
  Sex: Female
  Weight: 126.8 kg

DRUGS (8)
  1. YAZ [Suspect]
     Dosage: UNK
     Dates: start: 2008, end: 201012
  2. TYLENOL [Concomitant]
     Indication: HEADACHE
     Dosage: UNK
  3. DIOVAN [Concomitant]
     Indication: HYPERTENSION
  4. LOZOL [Concomitant]
     Indication: HYPERTENSION
  5. FLUOXETINE [Concomitant]
     Indication: DEPRESSION
  6. FLUOXETINE [Concomitant]
     Indication: OBSESSIVE-COMPULSIVE DISORDER
  7. TRAZODONE [Concomitant]
     Indication: SLEEP DISORDER THERAPY
  8. PROZAC [Concomitant]

REACTIONS (4)
  - Cholecystectomy [None]
  - Cholecystitis chronic [None]
  - Pain [None]
  - Emotional distress [None]
